FAERS Safety Report 10169622 (Version 2)
Quarter: 2014Q2

REPORT INFORMATION
  Report Type: Spontaneous
  Country: US (occurrence: US)
  Receive Date: 20140513
  Receipt Date: 20140513
  Transmission Date: 20141212
  Serious: Yes (Hospitalization, Other)
  Sender: FDA-Public Use
  Company Number: US-BAXTER-2014BAX020877

PATIENT
  Sex: Male

DRUGS (4)
  1. DIANEAL LOW CALCIUM [Suspect]
     Indication: PERITONEAL DIALYSIS
     Route: 033
  2. DIANEAL LOW CALCIUM (ULTRABAG) [Suspect]
     Indication: PERITONEAL DIALYSIS
     Route: 033
  3. KEPRA [Concomitant]
     Indication: CONVULSION
     Route: 048
  4. KEPRA [Concomitant]
     Route: 048

REACTIONS (3)
  - Convulsion [Recovered/Resolved]
  - Systemic lupus erythematosus [Recovering/Resolving]
  - Blood pressure abnormal [Unknown]
